FAERS Safety Report 13332696 (Version 1)
Quarter: 2017Q1

REPORT INFORMATION
  Report Type: Spontaneous
  Country: FR (occurrence: FR)
  Receive Date: 20170313
  Receipt Date: 20170313
  Transmission Date: 20170428
  Serious: Yes (Hospitalization, Other)
  Sender: FDA-Public Use
  Company Number: FR-UCBSA-2017009110

PATIENT
  Age: 71 Year
  Sex: Male

DRUGS (1)
  1. VIMPAT [Suspect]
     Active Substance: LACOSAMIDE
     Indication: EPILEPSY
     Dosage: 100 MG IN MORNING AND 150 MG IN EVENING, 2X/DAY (BID)
     Dates: start: 201603

REACTIONS (6)
  - Overdose [Unknown]
  - Memory impairment [Not Recovered/Not Resolved]
  - Coma [Not Recovered/Not Resolved]
  - Status epilepticus [Not Recovered/Not Resolved]
  - Intentional product misuse [Unknown]
  - Epilepsy [Not Recovered/Not Resolved]

NARRATIVE: CASE EVENT DATE: 201603
